FAERS Safety Report 15867724 (Version 2)
Quarter: 2019Q4

REPORT INFORMATION
  Report Type: Spontaneous
  Country: US (occurrence: US)
  Receive Date: 20190125
  Receipt Date: 20191120
  Transmission Date: 20200122
  Serious: No
  Sender: FDA-Public Use
  Company Number: US-BRISTOL-MYERS SQUIBB COMPANY-BMS-2019-006955

PATIENT
  Sex: Female

DRUGS (1)
  1. SPRYCEL [Suspect]
     Active Substance: DASATINIB
     Indication: LEUKAEMIA
     Dosage: 50 MG, QD
     Route: 048
     Dates: start: 20180604

REACTIONS (4)
  - Adverse event [Unknown]
  - Arthropod sting [Unknown]
  - Urticaria [Unknown]
  - Nasopharyngitis [Unknown]
